FAERS Safety Report 21226874 (Version 1)
Quarter: 2022Q3

REPORT INFORMATION
  Report Type: Spontaneous
  Country: RU (occurrence: RU)
  Receive Date: 20220818
  Receipt Date: 20220818
  Transmission Date: 20221027
  Serious: Yes (Other)
  Sender: FDA-Public Use
  Company Number: RU-BAYER-2022P011096

PATIENT
  Sex: Female

DRUGS (8)
  1. EYLEA [Suspect]
     Active Substance: AFLIBERCEPT
     Indication: Age-related macular degeneration
     Dosage: UNK, LEFT EYE, FIRST DOSE, SOLUTION FOR INJECTION
     Route: 031
     Dates: start: 20200316, end: 20200316
  2. EYLEA [Suspect]
     Active Substance: AFLIBERCEPT
     Dosage: UNK, Q1MON, LEFT EYE, SOLUTION FOR INJECTION
  3. EYLEA [Suspect]
     Active Substance: AFLIBERCEPT
     Dosage: UNK, EIGHT MONTHLY INJECTIONS, LEFT EYE - WITH A GRADUAL INCREASE IN THE INTERVAL BETWEEN INJ, SOLUT
     Route: 031
     Dates: start: 20200921, end: 20210121
  4. EYLEA [Suspect]
     Active Substance: AFLIBERCEPT
     Dosage: UNK, RIGHT EYE, SOLUTION FOR INJECTION
     Route: 031
     Dates: start: 20200629, end: 20200824
  5. EYLEA [Suspect]
     Active Substance: AFLIBERCEPT
     Dosage: UNK, 14 INJECTIONS, RIGHT EYE, WITH  A  GRADUAL  INCREASE  IN  THE INTERVALS  BETWEEN  INJECTIONS  U
     Route: 031
     Dates: start: 20200629, end: 20220514
  6. RETINALAMIN [ETOFENAMATE] [Concomitant]
     Indication: Product used for unknown indication
  7. TAUFON [TAURINE] [Concomitant]
     Indication: Product used for unknown indication
  8. EMOXYPIN [Concomitant]
     Indication: Product used for unknown indication

REACTIONS (1)
  - Blindness [Unknown]
